FAERS Safety Report 7742258-7 (Version None)
Quarter: 2011Q3

REPORT INFORMATION
  Report Type: 
  Country: None (occurrence: None)
  Receive Date: 20110901
  Receipt Date: 20110826
  Transmission Date: 20111222
  Serious: Yes (Other)
  Sender: FDA-Public Use
  Company Number: 7079219

PATIENT
  Age: 61 Year
  Sex: Male

DRUGS (5)
  1. METFORMIN HCL [Suspect]
     Indication: DIABETES MELLITUS
     Dosage: (1000 MG) ORAL
     Route: 048
     Dates: start: 20090101
  2. CLOZARIL [Suspect]
     Indication: SCHIZOPHRENIA
     Dosage: (350 MG) ORAL ; ORAL
     Route: 048
     Dates: start: 20050926
  3. CLOZARIL [Suspect]
     Indication: SCHIZOPHRENIA
     Dosage: (350 MG) ORAL ; ORAL
     Route: 048
     Dates: start: 20100628
  4. LEVOTHYROXINE SODIUM [Suspect]
     Indication: HYPOTHYROIDISM
     Dosage: ORAL
     Route: 048
     Dates: start: 20100728
  5. ESOMEPRAZOLE SODIUM [Suspect]
     Indication: OESOPHAGITIS
     Dosage: (40 MG) ORAL
     Route: 048
     Dates: start: 19901123

REACTIONS (4)
  - OESOPHAGEAL CARCINOMA [None]
  - MALAISE [None]
  - DIABETES MELLITUS [None]
  - METASTASES TO THE MEDIASTINUM [None]
